FAERS Safety Report 9341921 (Version 2)
Quarter: 2013Q2

REPORT INFORMATION
  Report Type: Spontaneous
  Country: US (occurrence: None)
  Receive Date: 20130606
  Receipt Date: 20130627
  Transmission Date: 20140414
  Serious: Yes (Hospitalization, Other)
  Sender: FDA-Public Use
  Company Number: JPI-P-032386

PATIENT
  Age: 61 Year
  Sex: Female
  Weight: 129.28 kg

DRUGS (11)
  1. XYREM (500 MILLIGRAM/ MILLILITERS, SOLUTION) (SODIUM OXYBATE) [Suspect]
     Indication: CATAPLEXY
     Dosage: 9 GM (4.5 GM, 2 IN 1 D), ORAL
     Route: 048
     Dates: start: 200503
  2. XYREM (500 MILLIGRAM/ MILLILITERS, SOLUTION) (SODIUM OXYBATE) [Suspect]
     Dosage: 9 GM (4.5 GM, 2 IN 1 D), ORAL
     Route: 048
     Dates: start: 200503
  3. WARFARIN SODIUM [Concomitant]
  4. HYDROCHLOROTHIAZIDE OLMESARTAN MEDOXOMIL [Concomitant]
  5. SIMVASTATIN [Concomitant]
  6. MODAFINIL [Concomitant]
  7. NEBIVOLOL [Concomitant]
  8. ACETYLSALICYLIC ACID [Concomitant]
  9. ALENDRONATE SODIUM [Concomitant]
  10. CALCIUM [Concomitant]
  11. MULTIVITAMINS [Concomitant]

REACTIONS (7)
  - Cellulitis [None]
  - Haematoma [None]
  - Clostridium difficile infection [None]
  - Contusion [None]
  - Blood potassium decreased [None]
  - Pain in extremity [None]
  - Fall [None]
